FAERS Safety Report 16832439 (Version 1)
Quarter: 2019Q4

REPORT INFORMATION
  Report Type: Spontaneous
  Country: US (occurrence: US)
  Receive Date: 20190920
  Receipt Date: 20190920
  Transmission Date: 20200122
  Serious: Yes (Hospitalization)
  Sender: FDA-Public Use
  Company Number: None

PATIENT
  Age: 61 Year
  Sex: Female

DRUGS (1)
  1. NP THYROID [Suspect]
     Active Substance: LEVOTHYROXINE\LIOTHYRONINE
     Indication: HYPOTHYROIDISM
     Dosage: ?          QUANTITY:4 TABLET(S);?
     Route: 048
     Dates: start: 20180101, end: 20190906

REACTIONS (16)
  - Abdominal pain [None]
  - Product odour abnormal [None]
  - Product appearance confusion [None]
  - Blood pressure fluctuation [None]
  - Crying [None]
  - Tinnitus [None]
  - Dyspnoea [None]
  - Swelling [None]
  - Heart rate irregular [None]
  - Nausea [None]
  - Neuropathy peripheral [None]
  - Chest pain [None]
  - Gastrooesophageal reflux disease [None]
  - Confusional state [None]
  - Product taste abnormal [None]
  - Throat irritation [None]

NARRATIVE: CASE EVENT DATE: 20190906
